FAERS Safety Report 23622965 (Version 1)
Quarter: 2024Q1

REPORT INFORMATION
  Report Type: Spontaneous
  Country: NL (occurrence: NL)
  Receive Date: 20240312
  Receipt Date: 20240312
  Transmission Date: 20240410
  Serious: Yes (Other)
  Sender: FDA-Public Use
  Company Number: None

PATIENT
  Age: 42 Year
  Sex: Female
  Weight: 75 kg

DRUGS (2)
  1. PREGABALIN [Suspect]
     Active Substance: PREGABALIN
     Indication: Paraesthesia
     Dosage: 1 PIECE TWICE A DAY , PREGABALINE  / BRAND NAME NOT SPECIFIED
     Route: 065
     Dates: start: 20231110, end: 20240116
  2. OXYCODONE [Concomitant]
     Active Substance: OXYCODONE\OXYCODONE HYDROCHLORIDE
     Indication: Product used for unknown indication
     Dosage: 5 MG (MILLIGRAM), TABLET MGA 5MG / BRAND NAME NOT SPECIFIED
     Route: 065

REACTIONS (1)
  - Polyarthritis [Recovering/Resolving]
